FAERS Safety Report 23050301 (Version 1)
Quarter: 2023Q4

REPORT INFORMATION
  Report Type: Spontaneous
  Country: US (occurrence: None)
  Receive Date: 20231009
  Receipt Date: 20231009
  Transmission Date: 20240110
  Serious: Yes (Hospitalization)
  Sender: FDA-Public Use
  Company Number: None

PATIENT
  Age: 17 Year
  Sex: Female
  Weight: 56.25 kg

DRUGS (1)
  1. QBREXZA [Suspect]
     Active Substance: GLYCOPYRRONIUM TOSYLATE

REACTIONS (6)
  - Dry mouth [None]
  - Pruritus [None]
  - Urinary retention [None]
  - Vision blurred [None]
  - Visual impairment [None]
  - Pupil fixed [None]

NARRATIVE: CASE EVENT DATE: 20231009
